FAERS Safety Report 4480444-2 (Version None)
Quarter: 2004Q4

REPORT INFORMATION
  Report Type: 
  Country: None (occurrence: None)
  Receive Date: 20041018
  Receipt Date: 20041002
  Transmission Date: 20050328
  Serious: Yes (Other)
  Sender: FDA-Public Use
  Company Number: 2004075431

PATIENT
  Sex: 0

DRUGS (6)
  1. NEURONTIN [Suspect]
     Indication: ARTHRITIS
     Dosage: 600 MG
  2. FENTANYL [Suspect]
     Indication: ILL-DEFINED DISORDER
     Dosage: 75 MCG
  3. IBUPROFEN [Suspect]
     Indication: ILL-DEFINED DISORDER
  4. ROFECOXIB [Suspect]
     Indication: ILL-DEFINED DISORDER
  5. HELIANTHUS TUBEROSUS (HELIANTHUS TUBEROSUS [Suspect]
     Indication: ILL-DEFINED DISORDER
  6. ALL OTHER THERAPEUTIC PRODUCTS [Suspect]
     Indication: ILL-DEFINED DISORDER

REACTIONS (3)
  - ARTHRITIS [None]
  - KNEE ARTHROPLASTY [None]
  - OSTEOPOROSIS [None]
